FAERS Safety Report 23750197 (Version 1)
Quarter: 2024Q2

REPORT INFORMATION
  Report Type: Spontaneous
  Country: US (occurrence: US)
  Receive Date: 20240417
  Receipt Date: 20240417
  Transmission Date: 20240716
  Serious: No
  Sender: FDA-Public Use
  Company Number: US-JNJFOC-20240442085

PATIENT
  Age: 79 Year
  Sex: Female
  Weight: 51.2 kg

DRUGS (17)
  1. OPSUMIT [Suspect]
     Active Substance: MACITENTAN
     Indication: Product used for unknown indication
     Route: 048
  2. TREPROSTINIL SODIUM [Suspect]
     Active Substance: TREPROSTINIL SODIUM
     Indication: Pulmonary arterial hypertension
     Route: 055
     Dates: start: 20240321
  3. NITROBID [GLYCERYL TRINITRATE] [Concomitant]
  4. ACETAMINOPHEN [Concomitant]
     Active Substance: ACETAMINOPHEN
  5. FOLIC ACID [Concomitant]
     Active Substance: FOLIC ACID
  6. AMLODIPINE BESYLATE [Concomitant]
     Active Substance: AMLODIPINE BESYLATE
  7. LEXAPRO [Concomitant]
     Active Substance: ESCITALOPRAM OXALATE
  8. VITAMIN D3 [Concomitant]
     Active Substance: CHOLECALCIFEROL
  9. HYDROCORTISONE [Concomitant]
     Active Substance: HYDROCORTISONE
  10. CEPHALEXIN [Concomitant]
     Active Substance: CEPHALEXIN
  11. IBUPROFEN [Concomitant]
     Active Substance: IBUPROFEN
  12. TRAMADOL HCL [Concomitant]
     Active Substance: TRAMADOL HYDROCHLORIDE
  13. OMEPRAZOLE [Concomitant]
     Active Substance: OMEPRAZOLE
  14. METRONIDAZOLE [Concomitant]
     Active Substance: METRONIDAZOLE
  15. EVENITY [Concomitant]
     Active Substance: ROMOSOZUMAB-AQQG
  16. ESTRADIOL [Concomitant]
     Active Substance: ESTRADIOL
  17. ONE DAILY MULTIPLE [Concomitant]

REACTIONS (4)
  - Dyspnoea [Unknown]
  - Nasal congestion [Unknown]
  - Headache [Unknown]
  - Dizziness [Unknown]

NARRATIVE: CASE EVENT DATE: 20240101
